FAERS Safety Report 6866532-1 (Version None)
Quarter: 2010Q3

REPORT INFORMATION
  Report Type: 
  Country: None (occurrence: None)
  Receive Date: 20100722
  Receipt Date: 20100709
  Transmission Date: 20110219
  Serious: Yes (Other)
  Sender: FDA-Public Use
  Company Number: PHHY2010US47444

PATIENT
  Age: 23 Year
  Sex: Female

DRUGS (3)
  1. BROMOCRIPTINE MESYLATE [Suspect]
     Indication: BLOOD PROLACTIN INCREASED
  2. ASPIRIN [Concomitant]
  3. LMWH [Concomitant]

REACTIONS (3)
  - DRUG EXPOSURE DURING PREGNANCY [None]
  - NORMAL NEWBORN [None]
  - VAGINAL HAEMORRHAGE [None]
